FAERS Safety Report 25967138 (Version 1)
Quarter: 2025Q4

REPORT INFORMATION
  Report Type: Spontaneous
  Country: US (occurrence: US)
  Receive Date: 20251028
  Receipt Date: 20251028
  Transmission Date: 20260117
  Serious: Yes (Other)
  Sender: ABBVIE
  Company Number: US-ABBVIE-6517516

PATIENT
  Sex: Female

DRUGS (1)
  1. REFRESH RELIEVA PF XTRA [Suspect]
     Active Substance: CARBOXYMETHYLCELLULOSE SODIUM\GLYCERIN
     Indication: Dry eye
     Dosage: 5 DROPS EACH EYE PER DAY?PRESERVATIVE FREE?DURATION TEXT: 10 YEARS OR LONGER?MULTIDOSE
     Route: 047

REACTIONS (2)
  - Blindness [Not Recovered/Not Resolved]
  - Eye pain [Unknown]
